FAERS Safety Report 11061874 (Version 1)
Quarter: 2015Q2

REPORT INFORMATION
  Report Type: Spontaneous
  Country: US (occurrence: None)
  Receive Date: 20150423
  Receipt Date: 20150423
  Transmission Date: 20150821
  Serious: No
  Sender: FDA-Public Use
  Company Number: None

PATIENT
  Age: 44 Year
  Sex: Male
  Weight: 81.65 kg

DRUGS (1)
  1. DIVALPROEX SODIUM 500MG [Suspect]
     Active Substance: DIVALPROEX SODIUM
     Indication: SEIZURE
     Dosage: 1 TAB
     Route: 048
     Dates: start: 20150113, end: 20150214

REACTIONS (2)
  - Anticonvulsant drug level below therapeutic [None]
  - Product substitution issue [None]

NARRATIVE: CASE EVENT DATE: 20150214
